FAERS Safety Report 8455018-9 (Version None)
Quarter: 2012Q2

REPORT INFORMATION
  Report Type: 
  Country: None (occurrence: None)
  Receive Date: 20120615
  Receipt Date: 20120615
  Transmission Date: 20120825
  Serious: Yes (Hospitalization, Other)
  Sender: FDA-Public Use
  Company Number: None

PATIENT
  Age: 46 Year
  Sex: Female
  Weight: 80.7403 kg

DRUGS (3)
  1. BACTRIM [Suspect]
     Dosage: 4 PILLS A DAY (X 10 DAYS)
     Dates: start: 20110917, end: 20110927
  2. BACTRIM [Suspect]
     Dosage: 4 PILLS A DAY (X 10 DAYS)
     Dates: start: 20111013, end: 20111023
  3. CIPROFLOXACIN HYDROCHLORIDE [Suspect]
     Indication: STAPHYLOCOCCAL INFECTION
     Dosage: FOR 20 DAYS 2X'S A DAY
     Dates: start: 20110916, end: 20110919

REACTIONS (7)
  - NAUSEA [None]
  - ARTHRALGIA [None]
  - MUSCLE SPASMS [None]
  - SEROTONIN SYNDROME [None]
  - FALL [None]
  - CONFUSIONAL STATE [None]
  - HEADACHE [None]
